FAERS Safety Report 8124720 (Version 9)
Quarter: 2020Q3

REPORT INFORMATION
  Report Type: Report from Study
  Country: GB (occurrence: GB)
  Receive Date: 20110907
  Receipt Date: 20191104
  Transmission Date: 20201105
  Serious: Yes (Hospitalization)
  Sender: FDA-Public Use
  Company Number: PHHO2011GB14828

PATIENT
  Age: 32 Year
  Sex: Female
  Weight: 112.6 kg

DRUGS (6)
  1. FINGOLIMOD. [Suspect]
     Active Substance: FINGOLIMOD
     Indication: MULTIPLE SCLEROSIS
     Dosage: 0.5 MG, QD
     Route: 048
     Dates: start: 20110513, end: 20190830
  2. COCODAMOL [Concomitant]
     Active Substance: ACETAMINOPHEN\CODEINE PHOSPHATE
     Indication: MUSCLE SPASMS
     Dosage: 30/500
     Route: 048
     Dates: start: 2005
  3. BACLOFEN. [Concomitant]
     Active Substance: BACLOFEN
     Indication: MUSCLE SPASMS
     Dosage: 10 MG, BID
     Route: 048
     Dates: start: 20110514
  4. CITALOPRAM [Concomitant]
     Active Substance: CITALOPRAM HYDROBROMIDE
     Indication: DEPRESSION
     Dosage: 20 MG, QD
     Route: 048
     Dates: start: 2009
  5. OXYNORM [Concomitant]
     Active Substance: OXYCODONE HYDROCHLORIDE
     Indication: MUSCLE SPASMS
     Dosage: 5/10 MG, PRN
     Route: 048
     Dates: start: 20101115, end: 20110830
  6. CARBAMAZEPINE. [Concomitant]
     Active Substance: CARBAMAZEPINE
     Indication: TRIGEMINAL NEURALGIA
     Dosage: 200 MG, PRN
     Route: 048
     Dates: start: 20080125

REACTIONS (4)
  - Lymphopenia [Recovered/Resolved]
  - Urinary tract infection [Recovered/Resolved]
  - Sinusitis [Recovering/Resolving]
  - Pyelonephritis [Recovered/Resolved with Sequelae]

NARRATIVE: CASE EVENT DATE: 20110204
